FAERS Safety Report 4342488-0 (Version None)
Quarter: 2004Q2

REPORT INFORMATION
  Report Type: 
  Country: None (occurrence: None)
  Receive Date: 20040416
  Receipt Date: 20040406
  Transmission Date: 20050107
  Serious: Yes (Hospitalization)
  Sender: FDA-Public Use
  Company Number: 04P-056-0251876-00

PATIENT
  Age: 52 Year
  Sex: Female
  Weight: 87 kg

DRUGS (4)
  1. TARKA [Suspect]
     Indication: HYPERTENSION
     Dosage: 1 CAPSULE, 1 IN 1 D, PER ORAL
     Route: 048
     Dates: start: 20040205, end: 20040218
  2. TITANIUM DIOXIDE [Suspect]
  3. IRON OXIDE [Suspect]
  4. RILMENIDINE [Concomitant]

REACTIONS (8)
  - COUGH [None]
  - DYSPHAGIA [None]
  - FACE OEDEMA [None]
  - HYPERSENSITIVITY [None]
  - OEDEMA [None]
  - PAIN IN EXTREMITY [None]
  - PYREXIA [None]
  - TOXIC SKIN ERUPTION [None]
